FAERS Safety Report 12633681 (Version 2)
Quarter: 2016Q4

REPORT INFORMATION
  Report Type: Report from Study
  Country: GR (occurrence: GR)
  Receive Date: 20160808
  Receipt Date: 20161019
  Transmission Date: 20170207
  Serious: Yes (Hospitalization, Other)
  Sender: FDA-Public Use
  Company Number: PHHY2016GR096978

PATIENT
  Age: 84 Year
  Sex: Female
  Weight: 66.5 kg

DRUGS (7)
  1. LARIX [Concomitant]
     Active Substance: HERBALS
     Indication: HYPERTENSION
     Dosage: 20 MG, QD
     Route: 048
     Dates: start: 20150910, end: 20150912
  2. DILATREND [Concomitant]
     Active Substance: CARVEDILOL
     Indication: CORONARY ARTERY DISEASE
     Dosage: 12.5 MG, BID
     Route: 048
     Dates: start: 20131029
  3. CO APROVEL [Concomitant]
     Active Substance: HYDROCHLOROTHIAZIDE\IRBESARTAN
     Indication: HYPERTENSION
     Dosage: 300 MG, QD
     Route: 048
     Dates: start: 20131029
  4. EXJADE [Suspect]
     Active Substance: DEFERASIROX
     Dosage: 8 MG/KG, QD
     Route: 048
     Dates: start: 20151113, end: 20151201
  5. EXJADE [Suspect]
     Active Substance: DEFERASIROX
     Dosage: 15 MG/KG, QD
     Route: 048
     Dates: start: 20151202, end: 20160609
  6. EXJADE [Suspect]
     Active Substance: DEFERASIROX
     Indication: MYELODYSPLASTIC SYNDROME
     Dosage: 20 MG/KG, QD
     Route: 048
     Dates: start: 20150709, end: 20150924
  7. EXJADE [Suspect]
     Active Substance: DEFERASIROX
     Dosage: 15 MG/KG, QD
     Route: 048
     Dates: start: 20150925, end: 20151112

REACTIONS (13)
  - Haemoglobin decreased [Unknown]
  - Iron binding capacity total decreased [Unknown]
  - Basophil count increased [Unknown]
  - Blood lactate dehydrogenase increased [Unknown]
  - Serum ferritin increased [Unknown]
  - Blood creatinine increased [Not Recovered/Not Resolved]
  - Monocyte count increased [Unknown]
  - Glomerular filtration rate decreased [Unknown]
  - White blood cell count increased [Unknown]
  - Platelet count decreased [Unknown]
  - Red blood cell count decreased [Unknown]
  - Lymphocyte count increased [Unknown]
  - Neutrophil count decreased [Unknown]

NARRATIVE: CASE EVENT DATE: 20150824
